FAERS Safety Report 8790773 (Version 1)
Quarter: 2012Q4

REPORT INFORMATION
  Report Type: Spontaneous
  Country: US (occurrence: None)
  Receive Date: 20120906
  Receipt Date: 20120906
  Transmission Date: 20130627
  Serious: Yes (Hospitalization)
  Sender: FDA-Public Use
  Company Number: 091123-000059

PATIENT
  Age: 27 Year
  Sex: Female

DRUGS (3)
  1. PROACTIV RENEWING CLEANSER [Suspect]
     Indication: ACNE
     Route: 062
     Dates: start: 20091017, end: 20091022
  2. PROACTIV REPAIRING TREATMENT [Suspect]
     Route: 062
     Dates: start: 20091017, end: 20091022
  3. PROACTIV REFINING MASK [Suspect]
     Route: 062
     Dates: start: 20091017, end: 20091022

REACTIONS (2)
  - Swelling face [None]
  - Hypersensitivity [None]
